FAERS Safety Report 9281137 (Version 1)
Quarter: 2013Q2

REPORT INFORMATION
  Report Type: Spontaneous
  Country: JP (occurrence: None)
  Receive Date: 20130502
  Receipt Date: 20130502
  Transmission Date: 20140414
  Serious: Yes (Hospitalization)
  Sender: FDA-Public Use
  Company Number: TCI2012A05916

PATIENT
  Age: 81 Year
  Sex: Female

DRUGS (13)
  1. LANSOPRAZOLE (LANSOPRAZOLE) [Suspect]
     Indication: GASTRIC ULCER
     Route: 048
     Dates: start: 20120920, end: 20121004
  2. PEON [Suspect]
     Dosage: 240 MG (80, 3 IN 1 D)?
     Route: 048
     Dates: start: 20120403, end: 20121005
  3. PEON [Suspect]
     Indication: LUMBAR SPINAL STENOSIS
     Dosage: 240 MG (80, 3 IN 1 D)?
     Route: 048
     Dates: start: 20120403, end: 20121005
  4. INTEBAN (INDOMETACIN) [Concomitant]
  5. ATORVASTATIN (ATORVASTATIN) [Concomitant]
  6. CORINAEL CR (NIFEDIPINE) [Concomitant]
  7. LASIX (FUROSEMIDE) [Concomitant]
  8. FERROMIA (FERROUS SODIUM CITRATE) [Concomitant]
  9. CALONAL (PARACETAMOL) [Concomitant]
  10. NESP (DARBEPOETIN ALFA) [Concomitant]
  11. ALOSENN (ACHILLEA MILLEFOLIUM, SENNA ALEXANDRINA LEAF, SENNA ALEXANDRINA FRUIT, TARAXACUM OFFICINALE, RUBIA TINCTORUM ROOT TINCTURE) [Concomitant]
  12. FLUMETHOLON (FLUOROMETHOLONE) [Concomitant]
  13. TARIVID (OFLOXACIN) [Concomitant]

REACTIONS (2)
  - Gastric ulcer [None]
  - Condition aggravated [None]
